FAERS Safety Report 10995352 (Version 2)
Quarter: 2015Q2

REPORT INFORMATION
  Report Type: Spontaneous
  Country: PL (occurrence: PL)
  Receive Date: 20150407
  Receipt Date: 20150620
  Transmission Date: 20150821
  Serious: Yes (Other)
  Sender: FDA-Public Use
  Company Number: PL-SYMPLMED PHARMACEUTICALS-2015SYM00040

PATIENT
  Age: 79 Year
  Sex: Female
  Weight: 80 kg

DRUGS (3)
  1. ACEON [Suspect]
     Active Substance: PERINDOPRIL ERBUMINE
     Indication: HYPERTENSION
     Dosage: 5 MG, QD
     Route: 048
     Dates: start: 2003
  2. ANTIINFLAMMATORY AGENTS, NON-STEROIDS [Concomitant]
     Active Substance: UNSPECIFIED INGREDIENT
     Indication: INTERVERTEBRAL DISC DEGENERATION
     Dosage: UNK
     Route: 048
  3. ANTIINFLAMMATORY AGENTS, NON-STEROIDS [Concomitant]
     Active Substance: UNSPECIFIED INGREDIENT
     Indication: PAIN

REACTIONS (2)
  - Peripheral sensory neuropathy [Not Recovered/Not Resolved]
  - Adverse event [Unknown]

NARRATIVE: CASE EVENT DATE: 2005
